FAERS Safety Report 21307778 (Version 2)
Quarter: 2022Q4

REPORT INFORMATION
  Report Type: Report from Study
  Country: US (occurrence: US)
  Receive Date: 20220908
  Receipt Date: 20221021
  Transmission Date: 20230113
  Serious: Yes (Death, Other)
  Sender: FDA-Public Use
  Company Number: US-HBP-2022US027068

PATIENT
  Age: 66 Year
  Sex: Female

DRUGS (2)
  1. TRUSELTIQ [Suspect]
     Active Substance: INFIGRATINIB
     Indication: Gallbladder cancer
     Dosage: 125 MILLIGRAM, ONCE DAILY FOR 21 DAYS
     Route: 048
     Dates: start: 20220707, end: 20220727
  2. TRUSELTIQ [Suspect]
     Active Substance: INFIGRATINIB
     Dosage: 50 MILLIGRAM, QD
     Route: 048
     Dates: start: 2022, end: 20220809

REACTIONS (13)
  - Gallbladder cancer [Fatal]
  - Malignant neoplasm progression [Fatal]
  - Haematocrit decreased [Recovering/Resolving]
  - Haemoglobin decreased [Recovering/Resolving]
  - Drug intolerance [Unknown]
  - Toxicity to various agents [Unknown]
  - Dizziness [Unknown]
  - Balance disorder [Unknown]
  - Off label use [Unknown]
  - Therapy interrupted [Not Recovered/Not Resolved]
  - Fall [Unknown]
  - Asthenia [Unknown]
  - Decreased appetite [Unknown]

NARRATIVE: CASE EVENT DATE: 20220707
